FAERS Safety Report 10034214 (Version 1)
Quarter: 2013Q4

REPORT INFORMATION
  Report Type: Spontaneous
  Country: US (occurrence: None)
  Receive Date: 20131231
  Receipt Date: 20131231
  Transmission Date: 20140711
  Serious: Yes (Other)
  Sender: FDA-Public Use
  Company Number: 2010S1000043

PATIENT
  Age: 40 Year
  Sex: Female

DRUGS (1)
  1. FLEET PHOSPHO-SODA ORAL SALINE LAXATIVE, GINGER-LEMON FLAVOR [Suspect]
     Indication: COLONOSCOPY
     Route: 048
     Dates: start: 20061102, end: 20061103

REACTIONS (4)
  - Renal failure [None]
  - Renal transplant [None]
  - Hypertension [None]
  - Anxiety disorder [None]
